FAERS Safety Report 10252906 (Version 1)
Quarter: 2014Q2

REPORT INFORMATION
  Report Type: Spontaneous
  Country: US (occurrence: US)
  Receive Date: 20140623
  Receipt Date: 20140623
  Transmission Date: 20141212
  Serious: No
  Sender: FDA-Public Use
  Company Number: US-TEVA-488091USA

PATIENT
  Sex: Male
  Weight: 97.61 kg

DRUGS (5)
  1. AZILECT [Suspect]
     Indication: PARKINSON^S DISEASE
     Dates: start: 20140527
  2. CARBIDOPA W/LEVODOPA [Concomitant]
     Indication: PARKINSON^S DISEASE
     Dosage: 400 MILLIGRAM DAILY;
     Route: 048
  3. ALEVE [Concomitant]
     Indication: PAIN
  4. ZYRTEC [Concomitant]
     Indication: SEASONAL ALLERGY
  5. TRAMADOL ER [Concomitant]
     Indication: ARTHRALGIA
     Dosage: 100 MILLIGRAM DAILY;
     Route: 048

REACTIONS (2)
  - Abnormal dreams [Not Recovered/Not Resolved]
  - Tremor [Not Recovered/Not Resolved]
